FAERS Safety Report 10418867 (Version 1)
Quarter: 2014Q3

REPORT INFORMATION
  Report Type: Spontaneous
  Country: GB (occurrence: None)
  Receive Date: 20140827
  Receipt Date: 20140827
  Transmission Date: 20150326
  Serious: Yes (Other)
  Sender: FDA-Public Use
  Company Number: AUR-APL-2014-09021

PATIENT
  Age: 28 Year
  Sex: Male
  Weight: 88.9 kg

DRUGS (5)
  1. SIMPLE LINCTUS  (CITRIC ACID) [Concomitant]
  2. CLARITHROMYCIN. [Suspect]
     Active Substance: CLARITHROMYCIN
     Indication: LOWER RESPIRATORY TRACT INFECTION
     Route: 048
     Dates: start: 20140807, end: 20140808
  3. PARACETAMOL (PARACETAMOL) [Concomitant]
     Active Substance: ACETAMINOPHEN
  4. CO-COMADOL (CODEINE PHOSPHATE, PARACETAMOL) [Concomitant]
  5. AMOXICILLIN  (AMOXICILLIN) [Concomitant]
     Active Substance: AMOXICILLIN

REACTIONS (4)
  - Heart rate increased [None]
  - Dyspepsia [None]
  - Nausea [None]
  - Feeling abnormal [None]

NARRATIVE: CASE EVENT DATE: 20140807
